FAERS Safety Report 15794439 (Version 1)
Quarter: 2019Q1

REPORT INFORMATION
  Report Type: Spontaneous
  Country: US (occurrence: US)
  Receive Date: 20190106
  Receipt Date: 20190106
  Transmission Date: 20190417
  Serious: No
  Sender: FDA-Public Use
  Company Number: None

PATIENT
  Age: 49 Year
  Sex: Female
  Weight: 63.9 kg

DRUGS (1)
  1. SALONPAS PAIN RELIEVING [Suspect]
     Active Substance: CAMPHOR (SYNTHETIC)\MENTHOL\METHYL SALICYLATE
     Indication: BACK PAIN
     Route: 062
     Dates: start: 20190102, end: 20190102

REACTIONS (3)
  - Application site pruritus [None]
  - Application site burn [None]
  - Application site pain [None]

NARRATIVE: CASE EVENT DATE: 20190102
